FAERS Safety Report 19832202 (Version 1)
Quarter: 2021Q3

REPORT INFORMATION
  Report Type: Spontaneous
  Country: US (occurrence: US)
  Receive Date: 20210915
  Receipt Date: 20210915
  Transmission Date: 20211014
  Serious: Yes (Other)
  Sender: FDA-Public Use
  Company Number: None

PATIENT
  Age: 38 Year
  Sex: Male
  Weight: 115.9 kg

DRUGS (6)
  1. BARICITINIB. [Concomitant]
     Active Substance: BARICITINIB
     Dates: start: 20210818, end: 20210824
  2. REMDESIVIR. [Concomitant]
     Active Substance: REMDESIVIR
     Dates: start: 20210819, end: 20210823
  3. REMDESIVIR. [Suspect]
     Active Substance: REMDESIVIR
     Indication: COVID-19
     Route: 042
     Dates: start: 20210819, end: 20210823
  4. DEXAMETHASONE IV [Concomitant]
     Active Substance: DEXAMETHASONE
     Dates: start: 20210818, end: 20210824
  5. AZITHROMYCIN IV [Concomitant]
     Dates: start: 20210818, end: 20210822
  6. CEFTRIAXONE. [Concomitant]
     Active Substance: CEFTRIAXONE
     Dates: start: 20210818, end: 20210821

REACTIONS (2)
  - Adverse drug reaction [None]
  - Bradycardia [None]

NARRATIVE: CASE EVENT DATE: 20210823
